FAERS Safety Report 6986176-0 (Version None)
Quarter: 2010Q3

REPORT INFORMATION
  Report Type: 
  Country: None (occurrence: None)
  Receive Date: 20100915
  Receipt Date: 20090630
  Transmission Date: 20110219
  Serious: No
  Sender: FDA-Public Use
  Company Number: US-WYE-H09558509

PATIENT
  Sex: Female
  Weight: 65.83 kg

DRUGS (1)
  1. PRISTIQ [Suspect]
     Indication: DEPRESSION
     Dosage: 50 MG, FREQUENCY NOT SPECIFIED
     Route: 048
     Dates: start: 20080901, end: 20090528

REACTIONS (4)
  - DISORIENTATION [None]
  - DIZZINESS [None]
  - DRUG WITHDRAWAL SYNDROME [None]
  - PARAESTHESIA [None]
